FAERS Safety Report 8371349-5 (Version None)
Quarter: 2012Q2

REPORT INFORMATION
  Report Type: 
  Country: None (occurrence: None)
  Receive Date: 20120517
  Receipt Date: 20120507
  Transmission Date: 20120825
  Serious: Yes (Other)
  Sender: FDA-Public Use
  Company Number: 2012-2153

PATIENT
  Age: 40 Year
  Sex: Female

DRUGS (1)
  1. DYSPORT [Suspect]
     Indication: SKIN COSMETIC PROCEDURE

REACTIONS (3)
  - OVARIAN CYST [None]
  - BRONCHITIS HAEMOPHILUS [None]
  - CORYNEBACTERIUM INFECTION [None]
